FAERS Safety Report 25360217 (Version 5)
Quarter: 2025Q3

REPORT INFORMATION
  Report Type: Spontaneous
  Country: EU (occurrence: EU)
  Receive Date: 20250527
  Receipt Date: 20250726
  Transmission Date: 20251020
  Serious: Yes (Hospitalization, Other)
  Sender: ALEXION PHARMACEUTICALS
  Company Number: EU-SANDOZ-SDZ2025IT025519

PATIENT
  Age: 65 Year
  Sex: Female
  Weight: 64 kg

DRUGS (8)
  1. IMFINZI [Suspect]
     Active Substance: DURVALUMAB
     Indication: Product used for unknown indication
     Dosage: UNK, Q3W
     Route: 065
     Dates: start: 20250327, end: 20250327
  2. CISPLATIN [Suspect]
     Active Substance: CISPLATIN
     Indication: Product used for unknown indication
     Dosage: UNK, Q3W
     Route: 065
     Dates: start: 20250403, end: 20250403
  3. GEMCITABINE [Suspect]
     Active Substance: GEMCITABINE
     Indication: Product used for unknown indication
     Dosage: UNK, Q3W
     Route: 065
     Dates: start: 20250403, end: 20250403
  4. MOVICOL [Concomitant]
     Active Substance: POLYETHYLENE GLYCOL 3350\POTASSIUM CHLORIDE\SODIUM BICARBONATE\SODIUM CHLORIDE
     Indication: Product used for unknown indication
     Route: 065
  5. MIRTAZAPINE [Concomitant]
     Active Substance: MIRTAZAPINE
     Indication: Product used for unknown indication
     Route: 065
  6. OLMESARTAN [Concomitant]
     Active Substance: OLMESARTAN
     Indication: Product used for unknown indication
     Route: 065
  7. ALPRAZOLAM [Concomitant]
     Active Substance: ALPRAZOLAM
     Indication: Product used for unknown indication
     Route: 065
  8. PALIPERIDONE [Concomitant]
     Active Substance: PALIPERIDONE
     Indication: Product used for unknown indication
     Route: 065

REACTIONS (4)
  - Thrombosis [Unknown]
  - Pseudomonas infection [Recovered/Resolved]
  - Pyrexia [Recovered/Resolved]
  - Pyrexia [Recovered/Resolved]

NARRATIVE: CASE EVENT DATE: 20250401
